FAERS Safety Report 14294577 (Version 1)
Quarter: 2017Q4

REPORT INFORMATION
  Report Type: Report from Study
  Country: US (occurrence: US)
  Receive Date: 20171218
  Receipt Date: 20171218
  Transmission Date: 20180321
  Serious: Yes (Hospitalization, Other)
  Sender: FDA-Public Use
  Company Number: US-ROCHE-2003209

PATIENT
  Sex: Male
  Weight: 95.34 kg

DRUGS (15)
  1. XOLAIR [Suspect]
     Active Substance: OMALIZUMAB
     Indication: ASTHMA
     Route: 058
  2. OMEPRAZOLE. [Concomitant]
     Active Substance: OMEPRAZOLE
  3. PREDNISONE. [Concomitant]
     Active Substance: PREDNISONE
     Route: 065
  4. PROVENTIL [Concomitant]
     Active Substance: ALBUTEROL
  5. ALBUTEROL. [Concomitant]
     Active Substance: ALBUTEROL
  6. PROVENTIL [Concomitant]
     Active Substance: ALBUTEROL
     Route: 065
  7. EPIPEN [Concomitant]
     Active Substance: EPINEPHRINE
  8. ASTEPRO [Concomitant]
     Active Substance: AZELASTINE HYDROCHLORIDE
     Route: 065
  9. DULERA [Concomitant]
     Active Substance: FORMOTEROL FUMARATE DIHYDRATE\MOMETASONE FUROATE
  10. AZELASTINE. [Concomitant]
     Active Substance: AZELASTINE HYDROCHLORIDE
  11. ADVAIR HFA [Concomitant]
     Active Substance: FLUTICASONE PROPIONATE\SALMETEROL XINAFOATE
     Route: 065
  12. LEXAPRO [Concomitant]
     Active Substance: ESCITALOPRAM OXALATE
     Route: 065
  13. ENBREL [Concomitant]
     Active Substance: ETANERCEPT
  14. MONTELUCAST [Concomitant]
     Active Substance: MONTELUKAST SODIUM
  15. BREO ELLIPTA [Concomitant]
     Active Substance: FLUTICASONE FUROATE\VILANTEROL TRIFENATATE

REACTIONS (11)
  - Dysphagia [Unknown]
  - Rash [Unknown]
  - Abdominal pain upper [Unknown]
  - Mass [Unknown]
  - Eye pruritus [Unknown]
  - Anaphylactoid reaction [Unknown]
  - Asthma [Unknown]
  - Pruritus [Unknown]
  - Fatigue [Unknown]
  - Gastrooesophageal reflux disease [Unknown]
  - Dyspnoea [Unknown]
